FAERS Safety Report 8545452-0 (Version None)
Quarter: 2012Q3

REPORT INFORMATION
  Report Type: 
  Country: None (occurrence: None)
  Receive Date: 20120727
  Receipt Date: 20111205
  Transmission Date: 20120928
  Serious: No
  Sender: FDA-Public Use
  Company Number: US-ASTRAZENECA-2011SE67473

PATIENT
  Age: 15 Year
  Sex: Female
  Weight: 65.8 kg

DRUGS (5)
  1. SEROQUEL [Suspect]
     Route: 048
     Dates: start: 20090101
  2. SEROQUEL [Suspect]
     Route: 048
  3. TOPAMAX [Concomitant]
  4. WELLBUTRIN [Concomitant]
  5. LEXAPRO [Concomitant]

REACTIONS (6)
  - MALAISE [None]
  - DISTURBANCE IN ATTENTION [None]
  - MANIA [None]
  - IRRITABILITY [None]
  - DRUG DOSE OMISSION [None]
  - INSOMNIA [None]
